FAERS Safety Report 17442976 (Version 2)
Quarter: 2020Q1

REPORT INFORMATION
  Report Type: Spontaneous
  Country: US (occurrence: US)
  Receive Date: 20200221
  Receipt Date: 20200221
  Transmission Date: 20200409
  Serious: Yes (Hospitalization)
  Sender: FDA-Public Use
  Company Number: US-CELGENEUS-USA-20200206580

PATIENT
  Sex: Female

DRUGS (1)
  1. OTEZLA [Suspect]
     Active Substance: APREMILAST
     Indication: PSORIATIC ARTHROPATHY
     Dosage: 60 MILLIGRAM
     Route: 048
     Dates: start: 20190531

REACTIONS (6)
  - Hypoxia [Unknown]
  - Arthralgia [Unknown]
  - Chest discomfort [Unknown]
  - Respiration abnormal [Unknown]
  - Blood potassium decreased [Unknown]
  - Psoriatic arthropathy [Unknown]
